FAERS Safety Report 13733782 (Version 3)
Quarter: 2017Q4

REPORT INFORMATION
  Report Type: Spontaneous
  Country: SE (occurrence: SE)
  Receive Date: 20170707
  Receipt Date: 20171002
  Transmission Date: 20180320
  Serious: Yes (Death, Other)
  Sender: FDA-Public Use
  Company Number: SE-ALEXION-A201707199

PATIENT
  Age: 61 Year
  Sex: Female

DRUGS (2)
  1. SOLIRIS [Suspect]
     Active Substance: ECULIZUMAB
     Indication: CHRONIC MYELOMONOCYTIC LEUKAEMIA
     Dosage: 900 MG, UNK
     Route: 042
     Dates: start: 20170619
  2. SOLIRIS [Suspect]
     Active Substance: ECULIZUMAB
     Indication: OFF LABEL USE

REACTIONS (5)
  - Cytomegalovirus infection [Fatal]
  - Pneumonia [Fatal]
  - Thrombotic microangiopathy [Fatal]
  - Off label use [Unknown]
  - Graft versus host disease [Fatal]

NARRATIVE: CASE EVENT DATE: 20170129
